FAERS Safety Report 20582452 (Version 1)
Quarter: 2022Q1

REPORT INFORMATION
  Report Type: Spontaneous
  Country: US (occurrence: None)
  Receive Date: 20220310
  Receipt Date: 20220310
  Transmission Date: 20220424
  Serious: Yes (Death)
  Sender: FDA-Public Use
  Company Number: None

PATIENT
  Age: 76 Year
  Sex: Female

DRUGS (15)
  1. SILDENAFIL [Suspect]
     Active Substance: SILDENAFIL
     Indication: Pulmonary hypertension
     Dosage: FREQUENCY : TWICE A DAY;?
     Route: 048
     Dates: end: 20220219
  2. GLIPIZIDE [Concomitant]
     Active Substance: GLIPIZIDE
  3. LEVOTHYROXINE [Concomitant]
     Active Substance: LEVOTHYROXINE
  4. LISINOPRIL [Concomitant]
     Active Substance: LISINOPRIL
  5. METFORMIN [Concomitant]
     Active Substance: METFORMIN HYDROCHLORIDE
  6. Potassium chloride ER 8mEQ [Concomitant]
  7. phenazopyridine 200ma [Concomitant]
  8. ONDANSETRON [Concomitant]
     Active Substance: ONDANSETRON
  9. prochlorperazine 10mg [Concomitant]
  10. Trelegy Ellipta 200-62.5mg [Concomitant]
  11. silver sulfadiazine 1 % ointment [Concomitant]
  12. lidocaine 5% ointment [Concomitant]
  13. bumetanide 2mg [Concomitant]
  14. JARDIANCE [Concomitant]
     Active Substance: EMPAGLIFLOZIN
  15. albuterol 0.021 % vials [Concomitant]

REACTIONS (2)
  - Acute respiratory failure [None]
  - Pneumonia bacterial [None]

NARRATIVE: CASE EVENT DATE: 20220219
